FAERS Safety Report 8715650 (Version 4)
Quarter: 2012Q4

REPORT INFORMATION
  Report Type: 
  Country: CH (occurrence: CH)
  Receive Date: 20120809
  Receipt Date: 20120919
  Transmission Date: 20130627
  Serious: Yes (Hospitalization, Other)
  Sender: FDA-Public Use
  Company Number: CH-ROCHE-1099024

PATIENT
  Age: 50 Year
  Sex: Female
  Weight: 60 kg

DRUGS (4)
  1. ACTEMRA [Suspect]
     Indication: RHEUMATOID ARTHRITIS
     Route: 042
     Dates: start: 20120408
  2. ACTEMRA [Suspect]
     Route: 065
     Dates: start: 20120516, end: 20120616
  3. PREDNISONE [Concomitant]
     Route: 065
  4. SIMPONI [Concomitant]
     Route: 065

REACTIONS (2)
  - Bronchial haemorrhage [Recovering/Resolving]
  - Tracheobronchitis [Recovering/Resolving]
